FAERS Safety Report 19928923 (Version 3)
Quarter: 2022Q1

REPORT INFORMATION
  Report Type: Spontaneous
  Country: JP (occurrence: JP)
  Receive Date: 20211007
  Receipt Date: 20220304
  Transmission Date: 20220423
  Serious: Yes (Death, Hospitalization, Other)
  Sender: FDA-Public Use
  Company Number: JP-BRISTOL-MYERS SQUIBB COMPANY-BMS-2021-101062

PATIENT
  Age: 71 Year
  Sex: Female

DRUGS (2)
  1. YERVOY [Suspect]
     Active Substance: IPILIMUMAB
     Indication: Renal cell carcinoma
     Dosage: UNK
     Route: 065
  2. OPDIVO [Suspect]
     Active Substance: NIVOLUMAB
     Indication: Renal cell carcinoma
     Dosage: UNK
     Route: 065

REACTIONS (9)
  - Malignant neoplasm progression [Fatal]
  - General physical health deterioration [Unknown]
  - Non-cardiogenic pulmonary oedema [Unknown]
  - Respiratory failure [Unknown]
  - Anaemia [Unknown]
  - Oedema peripheral [Unknown]
  - Decreased appetite [Unknown]
  - Hypercalcaemia [Unknown]
  - Hypoalbuminaemia [Unknown]
